FAERS Safety Report 4314768-6 (Version None)
Quarter: 2004Q1

REPORT INFORMATION
  Report Type: 
  Country: None (occurrence: None)
  Receive Date: 20040308
  Receipt Date: 20040226
  Transmission Date: 20041129
  Serious: Yes (Other)
  Sender: FDA-Public Use
  Company Number: NL-JNJFOC-20030802863

PATIENT
  Age: 45 Year
  Sex: Female
  Weight: 48 kg

DRUGS (5)
  1. RISPERDAL [Suspect]
     Indication: PSYCHOTIC DISORDER
     Dosage: 4 MG, IN 1 DAY, ORAL; 3 MG, IN 1 DAY, ORAL
     Route: 048
     Dates: end: 20030729
  2. RISPERDAL [Suspect]
     Indication: PSYCHOTIC DISORDER
     Dosage: 4 MG, IN 1 DAY, ORAL; 3 MG, IN 1 DAY, ORAL
     Route: 048
     Dates: start: 20030506
  3. OXAZEPAM (OXAZEPAM) TABLETS [Concomitant]
  4. LIBRIUM [Concomitant]
  5. THYRAX (LEVOTHYROXINE) [Concomitant]

REACTIONS (29)
  - ABNORMAL SENSATION IN EYE [None]
  - ARRHYTHMIA [None]
  - BLOOD IRON DECREASED [None]
  - CARDIAC DISORDER [None]
  - DIARRHOEA [None]
  - DRUG INEFFECTIVE [None]
  - DRUG LEVEL INCREASED [None]
  - DRY MOUTH [None]
  - DYSKINESIA [None]
  - DYSTONIA [None]
  - EMOTIONAL DISORDER [None]
  - EXTRAPYRAMIDAL DISORDER [None]
  - FACE OEDEMA [None]
  - FATIGUE [None]
  - GASTRIC DISORDER [None]
  - GENERALISED OEDEMA [None]
  - HEADACHE [None]
  - HYPOTHYROIDISM [None]
  - INFLUENZA [None]
  - KERATOCONJUNCTIVITIS SICCA [None]
  - MALAISE [None]
  - MUSCULOSKELETAL STIFFNESS [None]
  - OEDEMA PERIPHERAL [None]
  - PSYCHOTIC DISORDER [None]
  - STRABISMUS [None]
  - STRESS SYMPTOMS [None]
  - SYNCOPE [None]
  - TONGUE DISORDER [None]
  - URINARY INCONTINENCE [None]
